FAERS Safety Report 23234894 (Version 1)
Quarter: 2023Q4

REPORT INFORMATION
  Report Type: Spontaneous
  Country: JP (occurrence: JP)
  Receive Date: 20231128
  Receipt Date: 20231128
  Transmission Date: 20240109
  Serious: Yes (Other)
  Sender: FDA-Public Use
  Company Number: JP-MEIJISEIKA-202305785_P_1

PATIENT
  Age: 14 Year

DRUGS (1)
  1. REFLEX [Suspect]
     Active Substance: MIRTAZAPINE
     Dosage: UNK
     Route: 048

REACTIONS (1)
  - Intentional overdose [Unknown]
